FAERS Safety Report 6528533-2 (Version None)
Quarter: 2010Q1

REPORT INFORMATION
  Report Type: 
  Country: None (occurrence: None)
  Receive Date: 20100106
  Receipt Date: 20091210
  Transmission Date: 20100710
  Serious: Yes (Other)
  Sender: FDA-Public Use
  Company Number: PHHY2009CA54346

PATIENT
  Sex: Male

DRUGS (8)
  1. ALISKIREN ALI+ [Suspect]
     Indication: HYPERTENSION
     Dosage: 300 MG
     Route: 048
     Dates: end: 20091208
  2. ALTACE [Concomitant]
     Dosage: 10 MG, UNK
  3. NORVASC [Concomitant]
     Dosage: 10 MG, UNK
  4. HYDROCHLOROTHIAZIDE [Concomitant]
     Dosage: 25 MG, UNK
  5. ACTOS [Concomitant]
     Dosage: 30 MG, UNK
  6. METFORMIN HYDROCHLORIDE [Concomitant]
     Dosage: 520 MG, UNK
  7. RESTORIL [Concomitant]
     Dosage: 30 MG, UNK
  8. E GETACL [Concomitant]
     Dosage: 10 MG, UNK

REACTIONS (2)
  - BLOOD CREATININE INCREASED [None]
  - MICROALBUMINURIA [None]
